FAERS Safety Report 8606482-3 (Version None)
Quarter: 2012Q3

REPORT INFORMATION
  Report Type: 
  Country: None (occurrence: None)
  Receive Date: 20120820
  Receipt Date: 20120813
  Transmission Date: 20120928
  Serious: Yes (Other)
  Sender: FDA-Public Use
  Company Number: PHEH2012US016153

PATIENT
  Sex: Female

DRUGS (1)
  1. TEKTURNA HCT [Suspect]
     Indication: BLOOD PRESSURE

REACTIONS (3)
  - DIABETES MELLITUS [None]
  - OEDEMA [None]
  - NEOPLASM MALIGNANT [None]
